FAERS Safety Report 9149188 (Version 1)
Quarter: 2013Q1

REPORT INFORMATION
  Report Type: Spontaneous
  Country: US (occurrence: US)
  Receive Date: 20130308
  Receipt Date: 20130308
  Transmission Date: 20140127
  Serious: Yes (Hospitalization)
  Sender: FDA-Public Use
  Company Number: US-ENDO PHARMACEUTICALS INC.-OPCR20121619

PATIENT
  Age: 47 Year
  Sex: Female
  Weight: 54.48 kg

DRUGS (2)
  1. OPANA ER [Suspect]
     Indication: PAIN
     Route: 048
     Dates: start: 20120620, end: 20120712
  2. OPANA ER [Concomitant]
     Indication: PAIN
     Route: 048
     Dates: start: 20101227, end: 201206

REACTIONS (3)
  - Syncope [Not Recovered/Not Resolved]
  - Swollen tongue [Not Recovered/Not Resolved]
  - Memory impairment [Not Recovered/Not Resolved]
